FAERS Safety Report 7346247-6 (Version None)
Quarter: 2011Q1

REPORT INFORMATION
  Report Type: 
  Country: None (occurrence: None)
  Receive Date: 20110311
  Receipt Date: 20110304
  Transmission Date: 20110831
  Serious: No
  Sender: FDA-Public Use
  Company Number: US-PFIZER INC-2011048201

PATIENT
  Sex: Female

DRUGS (4)
  1. FOSAMAX [Suspect]
     Dosage: UNK
  2. IBANDRONATE SODIUM [Suspect]
     Dosage: UNK
  3. LIPITOR [Suspect]
     Dosage: UNK
  4. TERIPARATIDE [Suspect]
     Dosage: UNK

REACTIONS (2)
  - RESTLESS LEGS SYNDROME [None]
  - ARTHRALGIA [None]
